FAERS Safety Report 15505416 (Version 1)
Quarter: 2018Q4

REPORT INFORMATION
  Report Type: Report from Study
  Country: BE (occurrence: BE)
  Receive Date: 20181016
  Receipt Date: 20181016
  Transmission Date: 20190205
  Serious: Yes (Other)
  Sender: FDA-Public Use
  Company Number: BE-ROCHE-2198589

PATIENT
  Age: 32 Year
  Sex: Male

DRUGS (1)
  1. OCRELIZUMAB. [Suspect]
     Active Substance: OCRELIZUMAB
     Indication: PRIMARY PROGRESSIVE MULTIPLE SCLEROSIS
     Route: 065

REACTIONS (2)
  - Dehydration [Recovered/Resolved]
  - Hypovolaemic shock [Recovered/Resolved]

NARRATIVE: CASE EVENT DATE: 20181002
